FAERS Safety Report 7719431-7 (Version None)
Quarter: 2011Q3

REPORT INFORMATION
  Report Type: 
  Country: None (occurrence: None)
  Receive Date: 20110830
  Receipt Date: 20110824
  Transmission Date: 20111222
  Serious: Yes (Other)
  Sender: FDA-Public Use
  Company Number: PHHY2011CR75778

PATIENT
  Age: 2 Year
  Sex: Female

DRUGS (2)
  1. CEFTRIAXONE [Concomitant]
     Dosage: UNK UKN, UNK
  2. VOLTAREN [Suspect]
     Indication: PHARYNGITIS
     Dosage: 50 MG, QD
     Route: 054

REACTIONS (2)
  - RASH [None]
  - VULVOVAGINAL CANDIDIASIS [None]
